FAERS Safety Report 8450631-7 (Version None)
Quarter: 2012Q2

REPORT INFORMATION
  Report Type: 
  Country: None (occurrence: None)
  Receive Date: 20120620
  Receipt Date: 20120620
  Transmission Date: 20120825
  Serious: Yes (Other)
  Sender: FDA-Public Use
  Company Number: FR-PFIZER INC-2009259913

PATIENT
  Age: 36 Year
  Sex: Female

DRUGS (5)
  1. OMEPRAZOLE [Concomitant]
  2. SERTRALINE [Concomitant]
  3. ZOLPIDEM [Concomitant]
  4. VERAPAMIL HCL [Suspect]
  5. FLUTICASONE [Interacting]
     Dosage: 1500 UG, DAILY

REACTIONS (2)
  - CUSHING'S SYNDROME [None]
  - DRUG INTERACTION [None]
